FAERS Safety Report 11173022 (Version 2)
Quarter: 2015Q3

REPORT INFORMATION
  Report Type: Spontaneous
  Country: US (occurrence: US)
  Receive Date: 20150608
  Receipt Date: 20150722
  Transmission Date: 20151125
  Serious: Yes (Other)
  Sender: FDA-Public Use
  Company Number: CHPA2015US006975

PATIENT
  Age: 68 Year
  Sex: Female

DRUGS (1)
  1. VOLTAREN [Suspect]
     Active Substance: DICLOFENAC SODIUM
     Indication: ARTHRITIS
     Dosage: A LITTLE BIT, ONCE/SINGLE
     Route: 061
     Dates: start: 20150520, end: 20150520

REACTIONS (5)
  - Respiratory tract irritation [Recovered/Resolved]
  - Wrong technique in product usage process [Unknown]
  - Wheezing [Recovered/Resolved]
  - Inappropriate schedule of drug administration [Unknown]
  - Stress fracture [Unknown]

NARRATIVE: CASE EVENT DATE: 20150520
